FAERS Safety Report 20034206 (Version 1)
Quarter: 2021Q4

REPORT INFORMATION
  Report Type: Spontaneous
  Country: JP (occurrence: JP)
  Receive Date: 20211104
  Receipt Date: 20211104
  Transmission Date: 20220303
  Serious: Yes (Hospitalization, Other)
  Sender: FDA-Public Use
  Company Number: JP-MOCHP-A20214482

PATIENT
  Sex: Male

DRUGS (4)
  1. ESCITALOPRAM OXALATE [Suspect]
     Active Substance: ESCITALOPRAM OXALATE
     Indication: Product used for unknown indication
     Dosage: OVERDOSE: 560MG/ TOTAL
     Route: 048
  2. ALPRAZOLAM [Concomitant]
     Active Substance: ALPRAZOLAM
     Indication: Product used for unknown indication
     Dosage: OVERDOSE: 61.6MG/ TOTAL
     Route: 048
  3. CHLORPROMAZINE [Concomitant]
     Active Substance: CHLORPROMAZINE
     Indication: Product used for unknown indication
     Dosage: OVERDOSE: 3900MG/TOTAL
     Route: 048
  4. SUVOREXANT [Concomitant]
     Active Substance: SUVOREXANT
     Indication: Product used for unknown indication
     Dosage: OVERDOSE: 1120MG/TOTAL
     Route: 048

REACTIONS (8)
  - Neuroleptic malignant syndrome [Recovering/Resolving]
  - Liver disorder [Recovering/Resolving]
  - Acute kidney injury [Recovering/Resolving]
  - Multiple organ dysfunction syndrome [Unknown]
  - Metabolic encephalopathy [Unknown]
  - Rhabdomyolysis [Unknown]
  - Seizure [Recovering/Resolving]
  - Overdose [Unknown]
